FAERS Safety Report 15597789 (Version 1)
Quarter: 2018Q4

REPORT INFORMATION
  Report Type: Report from Study
  Country: US (occurrence: US)
  Receive Date: 20181108
  Receipt Date: 20181108
  Transmission Date: 20190205
  Serious: Yes (Other)
  Sender: FDA-Public Use
  Company Number: US-ELI_LILLY_AND_COMPANY-US201810015432

PATIENT

DRUGS (3)
  1. BRENTUXIMAB VEDOTIN [Suspect]
     Active Substance: BRENTUXIMAB VEDOTIN
     Indication: HODGKIN^S DISEASE
     Dosage: 1.8 MG/KG, CYCLICAL
     Route: 042
  2. BRENTUXIMAB VEDOTIN [Suspect]
     Active Substance: BRENTUXIMAB VEDOTIN
     Dosage: 1.2 MG/KG, CYCLICAL
     Route: 042
  3. GEMCITABINE HYDROCHLORIDE UNK_MANU [Suspect]
     Active Substance: GEMCITABINE HYDROCHLORIDE
     Indication: HODGKIN^S DISEASE
     Dosage: UNK, UNKNOWN
     Route: 042

REACTIONS (3)
  - Off label use [Unknown]
  - Adrenal insufficiency [Unknown]
  - Hypotension [Unknown]
